FAERS Safety Report 26200962 (Version 1)
Quarter: 2025Q4

REPORT INFORMATION
  Report Type: Spontaneous
  Country: MA (occurrence: MA)
  Receive Date: 20251226
  Receipt Date: 20251226
  Transmission Date: 20260118
  Serious: Yes (Hospitalization, Other)
  Sender: STRIDES
  Company Number: MA-STRIDES ARCOLAB LIMITED-2025SP016007

PATIENT
  Age: 38 Year
  Sex: Female

DRUGS (7)
  1. HALOPERIDOL [Suspect]
     Active Substance: HALOPERIDOL
     Indication: Schizophrenia
     Dosage: 6 MILLIGRAM, QD
     Route: 048
  2. METOCLOPRAMIDE [Suspect]
     Active Substance: METOCLOPRAMIDE
     Indication: Symptomatic treatment
     Dosage: 10 MILLIGRAM, QD
     Route: 065
  3. CHLORPROMAZINE [Suspect]
     Active Substance: CHLORPROMAZINE
     Indication: Schizophrenia
     Dosage: 50 MILLIGRAM, EVERY 6 HRS
  4. NEFOPAM [Suspect]
     Active Substance: NEFOPAM
     Indication: Symptomatic treatment
     Dosage: AS NEEDED
     Route: 065
  5. VITAMIN B6 [Suspect]
     Active Substance: PYRIDOXINE HYDROCHLORIDE
     Indication: Symptomatic treatment
     Dosage: UNK
     Route: 048
  6. RINGERS SOLUTION [Suspect]
     Active Substance: CALCIUM CHLORIDE\POTASSIUM CHLORIDE\SODIUM CHLORIDE
     Indication: Symptomatic treatment
     Dosage: UNK
     Route: 042
  7. SALINE [Suspect]
     Active Substance: SODIUM CHLORIDE
     Indication: Symptomatic treatment
     Dosage: UNK
     Route: 042

REACTIONS (3)
  - Drug-induced liver injury [Recovered/Resolved]
  - Maternal exposure during pregnancy [Unknown]
  - Off label use [Unknown]
